FAERS Safety Report 21906768 (Version 1)
Quarter: 2023Q1

REPORT INFORMATION
  Report Type: Spontaneous
  Country: DE (occurrence: None)
  Receive Date: 20230125
  Receipt Date: 20230125
  Transmission Date: 20230417
  Serious: Yes (Congenital Anomaly)
  Sender: FDA-Public Use
  Company Number: DE-ROCHE-3266158

PATIENT
  Age: 1 Day
  Sex: Male
  Weight: 3.07 kg

DRUGS (1)
  1. PEGASYS [Suspect]
     Active Substance: PEGINTERFERON ALFA-2A
     Indication: Product used for unknown indication
     Route: 064
     Dates: start: 20210510, end: 20220210

REACTIONS (9)
  - Chordee [Unknown]
  - Post procedural haemorrhage [Unknown]
  - Congenital genital malformation male [Unknown]
  - Tethered cord syndrome [Unknown]
  - Congenital skin dimples [Unknown]
  - Foetal exposure during pregnancy [Unknown]
  - Infantile haemangioma [Recovering/Resolving]
  - Pyelocaliectasis [Unknown]
  - Hypospadias [Unknown]

NARRATIVE: CASE EVENT DATE: 20220201
